FAERS Safety Report 15842466 (Version 2)
Quarter: 2019Q1

REPORT INFORMATION
  Report Type: Spontaneous
  Country: DE (occurrence: DE)
  Receive Date: 20190118
  Receipt Date: 20190207
  Transmission Date: 20190417
  Serious: Yes (Death, Other)
  Sender: FDA-Public Use
  Company Number: DE-009507513-2006-138954-NL

PATIENT
  Age: 76 Year
  Sex: Male
  Weight: 77 kg

DRUGS (3)
  1. MIRTAZAPINE. [Suspect]
     Active Substance: MIRTAZAPINE
     Indication: DEPRESSION
     Dosage: CONTINUING: NO
  2. SERTRALINE HYDROCHLORIDE. [Suspect]
     Active Substance: SERTRALINE HYDROCHLORIDE
     Dosage: UNK DF, UNK
  3. AMITRIPTYLINE HYDROCHLORIDE. [Suspect]
     Active Substance: AMITRIPTYLINE HYDROCHLORIDE
     Dosage: UNK DF, UNK

REACTIONS (2)
  - Overdose [Unknown]
  - Completed suicide [Fatal]
